FAERS Safety Report 7330096-9 (Version None)
Quarter: 2011Q1

REPORT INFORMATION
  Report Type: 
  Country: None (occurrence: None)
  Receive Date: 20110303
  Receipt Date: 20110218
  Transmission Date: 20110831
  Serious: Yes (Hospitalization)
  Sender: FDA-Public Use
  Company Number: FR-ELI_LILLY_AND_COMPANY-FR201102004997

PATIENT
  Sex: Male

DRUGS (2)
  1. ALIMTA [Suspect]
     Indication: LUNG ADENOCARCINOMA
     Dosage: UNK, EVERY 3WEEKS
     Route: 042
     Dates: start: 20100428
  2. PARAPLATIN [Concomitant]
     Indication: LUNG ADENOCARCINOMA
     Route: 042
     Dates: start: 20100428, end: 20100810

REACTIONS (2)
  - PULMONARY FIBROSIS [None]
  - SCLERODERMA [None]
